FAERS Safety Report 15903941 (Version 1)
Quarter: 2019Q1

REPORT INFORMATION
  Report Type: Spontaneous
  Country: GR (occurrence: GR)
  Receive Date: 20190204
  Receipt Date: 20190204
  Transmission Date: 20190417
  Serious: Yes (Death)
  Sender: FDA-Public Use
  Company Number: GR-ABBVIE-19K-066-2649931-00

PATIENT
  Age: 68 Year
  Sex: Male

DRUGS (2)
  1. VENCLYXTO [Suspect]
     Active Substance: VENETOCLAX
     Indication: DIFFUSE LARGE B-CELL LYMPHOMA
     Dosage: FIRST WEEK OF ADMINISTRATION
     Route: 048
  2. VENCLYXTO [Suspect]
     Active Substance: VENETOCLAX
     Dosage: SECOND WEEK OF ADMINISTRATION
     Route: 048

REACTIONS (3)
  - Off label use [Unknown]
  - General physical health deterioration [Fatal]
  - Drug ineffective for unapproved indication [Unknown]
